FAERS Safety Report 5041183-2 (Version None)
Quarter: 2006Q3

REPORT INFORMATION
  Report Type: 
  Country: None (occurrence: None)
  Receive Date: 20060703
  Receipt Date: 20060623
  Transmission Date: 20061208
  Serious: Yes (Life-Threatening, Hospitalization, Other)
  Sender: FDA-Public Use
  Company Number: US-GLAXOSMITHKLINE-A0610165A

PATIENT
  Age: 52 Year
  Sex: Male

DRUGS (2)
  1. EPZICOM [Suspect]
     Indication: HIV INFECTION
     Route: 048
  2. REYATAZ [Concomitant]

REACTIONS (1)
  - HYPOTENSION [None]
